FAERS Safety Report 7683862-4 (Version None)
Quarter: 2011Q3

REPORT INFORMATION
  Report Type: 
  Country: None (occurrence: None)
  Receive Date: 20110815
  Receipt Date: 20110810
  Transmission Date: 20111222
  Serious: Yes (Other)
  Sender: FDA-Public Use
  Company Number: GB-PFIZER INC-2011184455

PATIENT
  Age: 29 Year
  Weight: 85 kg

DRUGS (1)
  1. VARENICLINE TARTRATE [Suspect]
     Indication: SMOKING CESSATION THERAPY
     Dosage: 1 MG, 2X/DAY
     Route: 048
     Dates: start: 20110701, end: 20110719

REACTIONS (5)
  - ABNORMAL BEHAVIOUR [None]
  - DEPRESSED MOOD [None]
  - FATIGUE [None]
  - PERSONALITY DISORDER [None]
  - MOOD ALTERED [None]
